FAERS Safety Report 9239077 (Version 1)
Quarter: 2013Q2

REPORT INFORMATION
  Report Type: Spontaneous
  Country: US (occurrence: US)
  Receive Date: 20130418
  Receipt Date: 20130418
  Transmission Date: 20140414
  Serious: Yes (Other)
  Sender: FDA-Public Use
  Company Number: US-PFIZER INC-2013117624

PATIENT
  Age: 23 Year
  Sex: Female
  Weight: 43.99 kg

DRUGS (3)
  1. GEODON [Suspect]
     Indication: SCHIZOPHRENIA
     Dosage: UNK (SOMETIMES 12MG AND SOMETIMES 25 MG), 1X/DAY
  2. GEODON [Suspect]
     Indication: LOGORRHOEA
  3. ABILIFY [Suspect]
     Dosage: UNK

REACTIONS (6)
  - Thyroiditis [Not Recovered/Not Resolved]
  - Weight decreased [Unknown]
  - Eye disorder [Unknown]
  - Metabolic disorder [Unknown]
  - Paraesthesia [Unknown]
  - Gastric disorder [Unknown]
